FAERS Safety Report 6575112-7 (Version None)
Quarter: 2010Q1

REPORT INFORMATION
  Report Type: 
  Country: None (occurrence: None)
  Receive Date: 20100209
  Receipt Date: 20100202
  Transmission Date: 20100710
  Serious: Yes (Hospitalization)
  Sender: FDA-Public Use
  Company Number: US-AMGEN-QUU390320

PATIENT
  Sex: Male

DRUGS (2)
  1. ENBREL [Suspect]
     Indication: PSORIATIC ARTHROPATHY
     Route: 058
     Dates: start: 20040801
  2. ENBREL [Suspect]
     Indication: PSORIASIS

REACTIONS (3)
  - HIP ARTHROPLASTY [None]
  - PNEUMONIA [None]
  - PSORIASIS [None]
